FAERS Safety Report 19627005 (Version 1)
Quarter: 2021Q3

REPORT INFORMATION
  Report Type: Spontaneous
  Country: US (occurrence: US)
  Receive Date: 20210728
  Receipt Date: 20210728
  Transmission Date: 20211014
  Serious: Yes (Hospitalization)
  Sender: FDA-Public Use
  Company Number: None

PATIENT
  Sex: Female

DRUGS (18)
  1. BACLOFEN TAB [Concomitant]
  2. LORAZEPAM TAB [Concomitant]
  3. DALFAMPRIDINE 10MG [Suspect]
     Active Substance: DALFAMPRIDINE
     Indication: MULTIPLE SCLEROSIS
     Route: 048
     Dates: start: 20180608
  4. ALENDRONATE [Concomitant]
     Active Substance: ALENDRONATE SODIUM
  5. PROBIOTIC CAP [Concomitant]
  6. MYRBETRIQ TAB [Concomitant]
  7. KETOCONAZOLE CRE [Concomitant]
  8. SYSTANE GEL DRP [Concomitant]
  9. ARMODAFINIL TAB [Concomitant]
  10. MULTIVITAMIN TAB [Concomitant]
  11. VITAMIN D CAP [Concomitant]
  12. VITAMIN C TAB [Concomitant]
  13. MURO 128 OINT [Concomitant]
  14. FISH OIL CAP [Concomitant]
  15. MELATONIN TAB [Concomitant]
  16. CALCIUM TAB [Concomitant]
  17. AMITIZA CAP [Concomitant]
  18. NOTRIPTYLIN CAP [Concomitant]

REACTIONS (1)
  - Micturition urgency [None]
